FAERS Safety Report 12732870 (Version 1)
Quarter: 2016Q3

REPORT INFORMATION
  Report Type: Spontaneous
  Country: US (occurrence: US)
  Receive Date: 20160911
  Receipt Date: 20160911
  Transmission Date: 20161109
  Serious: No
  Sender: FDA-Public Use
  Company Number: None

PATIENT
  Age: 18 Year
  Sex: Female
  Weight: 53.55 kg

DRUGS (2)
  1. NAPROXEN. [Suspect]
     Active Substance: NAPROXEN
     Indication: DYSMENORRHOEA
     Dosage: 20 TABLET TWICE A DAY ORAL
     Route: 048
     Dates: start: 20160809, end: 20160809
  2. BIRTH CONTROL [Concomitant]
     Active Substance: UNSPECIFIED INGREDIENT

REACTIONS (11)
  - Presyncope [None]
  - Vision blurred [None]
  - Feeling abnormal [None]
  - Hypoacusis [None]
  - Neck pain [None]
  - Dizziness [None]
  - Cognitive disorder [None]
  - Confusional state [None]
  - Visual impairment [None]
  - Migraine [None]
  - Lymphadenopathy [None]

NARRATIVE: CASE EVENT DATE: 20160809
